FAERS Safety Report 7901702-2 (Version None)
Quarter: 2011Q4

REPORT INFORMATION
  Report Type: 
  Country: None (occurrence: None)
  Receive Date: 20111108
  Receipt Date: 20111025
  Transmission Date: 20120403
  Serious: Yes (Hospitalization, Other)
  Sender: FDA-Public Use
  Company Number: US-ELI_LILLY_AND_COMPANY-US201001004818

PATIENT
  Sex: Female

DRUGS (28)
  1. FORTEO [Suspect]
     Dosage: 20 UG, DAILY (1/D)
     Route: 065
  2. XANAX [Concomitant]
  3. ADVAIR DISKUS 100/50 [Concomitant]
  4. FIBER-LAX [Concomitant]
  5. OXYBUTYNIN [Concomitant]
  6. OXAPROZIN [Concomitant]
  7. VITAMIN D [Concomitant]
  8. IRON [Concomitant]
  9. AMBIEN CR [Concomitant]
  10. VITAMIN E [Concomitant]
  11. FORTEO [Suspect]
     Dosage: 20 UG, QD
     Route: 065
  12. FORTEO [Suspect]
     Dosage: 20 UG, QD
     Route: 065
  13. ASPIRIN [Concomitant]
  14. FLONASE [Concomitant]
  15. SIMVASTATIN [Concomitant]
  16. VITAMIN B-12 [Concomitant]
  17. RELAFEN [Concomitant]
  18. MIRALAX [Concomitant]
  19. CENTRUM [Concomitant]
  20. CALCIUM [Concomitant]
  21. COMBIVENT [Concomitant]
  22. PREDNISONE [Concomitant]
  23. HYDROCHLORZIDE [Concomitant]
  24. FISH OIL [Concomitant]
  25. COLACE [Concomitant]
  26. FORTEO [Suspect]
     Indication: OSTEOPOROSIS
     Dosage: 20 UG, DAILY (1/D)
     Route: 065
     Dates: start: 20091101
  27. GABAPENTIN [Concomitant]
  28. FOLIC ACID [Concomitant]

REACTIONS (5)
  - FALL [None]
  - PERIPHERAL ARTERIAL OCCLUSIVE DISEASE [None]
  - SPINAL COMPRESSION FRACTURE [None]
  - BALANCE DISORDER [None]
  - FEMUR FRACTURE [None]
